FAERS Safety Report 26035328 (Version 1)
Quarter: 2025Q4

REPORT INFORMATION
  Report Type: Spontaneous
  Country: US (occurrence: None)
  Receive Date: 20251112
  Receipt Date: 20251112
  Transmission Date: 20260117
  Serious: Yes (Hospitalization)
  Sender: FDA-CTU
  Company Number: None

PATIENT
  Sex: Female

DRUGS (2)
  1. NUCALA [Suspect]
     Active Substance: MEPOLIZUMAB
     Indication: Eosinophilic granulomatosis with polyangiitis
     Dosage: OTHER FREQUENCY : EVERY 28 DAYS;?
     Route: 058
  2. NUCALA [Suspect]
     Active Substance: MEPOLIZUMAB
     Indication: Hypereosinophilic syndrome

REACTIONS (2)
  - Seizure [None]
  - Product use issue [None]
